FAERS Safety Report 17506881 (Version 1)
Quarter: 2020Q1

REPORT INFORMATION
  Report Type: Spontaneous
  Country: US (occurrence: US)
  Receive Date: 20200306
  Receipt Date: 20200306
  Transmission Date: 20200409
  Serious: Yes (Hospitalization, Other)
  Sender: FDA-Public Use
  Company Number: US-AUROBINDO-AUR-APL-2020-010591

PATIENT
  Age: 61 Year
  Sex: Female

DRUGS (3)
  1. PREDNISONE. [Suspect]
     Active Substance: PREDNISONE
     Indication: SPINAL CORD INFARCTION
     Dosage: 40 MILLIGRAM, DAILY
     Route: 065
  2. METHYLPREDNISOLONE. [Suspect]
     Active Substance: METHYLPREDNISOLONE
     Indication: SPINAL CORD INFARCTION
     Dosage: 1000 MILLIGRAM
     Route: 042
  3. ENOXAPARIN [Concomitant]
     Active Substance: ENOXAPARIN
     Indication: SPINAL CORD INFARCTION
     Dosage: UNK
     Route: 065

REACTIONS (6)
  - Haemodynamic instability [Unknown]
  - Muscular weakness [Unknown]
  - Haemoglobin decreased [Unknown]
  - Faeces discoloured [Unknown]
  - Enterocolitis viral [Unknown]
  - Gastrointestinal haemorrhage [Unknown]
